FAERS Safety Report 8155579-3 (Version None)
Quarter: 2012Q1

REPORT INFORMATION
  Report Type: 
  Country: None (occurrence: None)
  Receive Date: 20120222
  Receipt Date: 20120214
  Transmission Date: 20120608
  Serious: Yes (Hospitalization, Other)
  Sender: FDA-Public Use
  Company Number: US-BAYER-2011-022974

PATIENT
  Age: 28 Year
  Sex: Female
  Weight: 78 kg

DRUGS (5)
  1. AUGMENTIN '125' [Concomitant]
     Dosage: 875 MG, BID
     Route: 048
  2. HYDROCODONE BITARTRATE + IBUPROFEN [Concomitant]
     Indication: PAIN
     Dosage: 1 DF, QID
     Route: 048
     Dates: start: 20090326
  3. YAZ [Suspect]
     Indication: CONTRACEPTION
     Dosage: UNK
     Dates: start: 20080627, end: 20091201
  4. YAZ [Suspect]
     Indication: PREMENSTRUAL SYNDROME
  5. ZOFRAN [Concomitant]
     Indication: VOMITING
     Dosage: 4 MG, Q4HR
     Route: 048
     Dates: start: 20090326

REACTIONS (5)
  - INJURY [None]
  - CHOLELITHIASIS [None]
  - CHOLECYSTITIS INFECTIVE [None]
  - MENTAL DISORDER [None]
  - GALLBLADDER DISORDER [None]
